FAERS Safety Report 16647278 (Version 3)
Quarter: 2020Q2

REPORT INFORMATION
  Report Type: Spontaneous
  Country: US (occurrence: US)
  Receive Date: 20190730
  Receipt Date: 20200619
  Transmission Date: 20200713
  Serious: Yes (Other)
  Sender: FDA-Public Use
  Company Number: US-PFIZER INC-2019323656

PATIENT
  Age: 73 Year
  Sex: Female
  Weight: 131.5 kg

DRUGS (6)
  1. AMIODARONE HCL [Suspect]
     Active Substance: AMIODARONE HYDROCHLORIDE
     Dosage: 200 MILLIGRAM
     Route: 065
  2. ELIQUIS [Suspect]
     Active Substance: APIXABAN
     Indication: CEREBROVASCULAR ACCIDENT PROPHYLAXIS
     Dosage: 5 MILLIGRAM, BID
     Route: 048
  3. LISINOPRIL. [Concomitant]
     Active Substance: LISINOPRIL
     Dosage: 10 MILLIGRAM
     Route: 065
  4. SUSTIVA [Concomitant]
     Active Substance: EFAVIRENZ
     Dosage: UNK
     Route: 065
  5. HUMALOG [Concomitant]
     Active Substance: INSULIN LISPRO
     Dosage: UNK
     Route: 065
  6. LEVOTHYROXINE. [Concomitant]
     Active Substance: LEVOTHYROXINE
     Dosage: 25 MILLIGRAM
     Route: 065

REACTIONS (4)
  - Hypothyroidism [Unknown]
  - Cardiac disorder [Unknown]
  - Inappropriate schedule of product administration [Unknown]
  - Weight increased [Unknown]
